FAERS Safety Report 5070813-4 (Version None)
Quarter: 2006Q3

REPORT INFORMATION
  Report Type: 
  Country: None (occurrence: None)
  Receive Date: 20060804
  Receipt Date: 20060424
  Transmission Date: 20061208
  Serious: No
  Sender: FDA-Public Use
  Company Number: US-GLAXOSMITHKLINE-A0603191A

PATIENT
  Sex: Male

DRUGS (1)
  1. NICORETTE [Suspect]
     Indication: DRUG USE FOR UNKNOWN INDICATION
     Dates: start: 20060422

REACTIONS (8)
  - COUGH [None]
  - DIZZINESS [None]
  - HEADACHE [None]
  - HICCUPS [None]
  - INFLUENZA LIKE ILLNESS [None]
  - MALAISE [None]
  - PAIN IN JAW [None]
  - PHARYNGOLARYNGEAL PAIN [None]
